FAERS Safety Report 19098279 (Version 1)
Quarter: 2021Q2

REPORT INFORMATION
  Report Type: Report from Study
  Country: US (occurrence: US)
  Receive Date: 20210406
  Receipt Date: 20210406
  Transmission Date: 20210717
  Serious: Yes (Other)
  Sender: FDA-Public Use
  Company Number: US-ASTELLAS-2021US012201

PATIENT
  Age: 59 Year
  Sex: Male

DRUGS (1)
  1. ASG?22CE [Suspect]
     Active Substance: ENFORTUMAB VEDOTIN
     Indication: BLADDER CANCER
     Route: 065

REACTIONS (1)
  - Neutropenia [Unknown]
